FAERS Safety Report 25273676 (Version 1)
Quarter: 2025Q2

REPORT INFORMATION
  Report Type: Spontaneous
  Country: US (occurrence: US)
  Receive Date: 20250506
  Receipt Date: 20250506
  Transmission Date: 20250717
  Serious: No
  Sender: CHATTEM
  Company Number: US-OPELLA-2025OHG013437

PATIENT

DRUGS (6)
  1. ALLEGRA [Suspect]
     Active Substance: FEXOFENADINE HYDROCHLORIDE
     Indication: Eye swelling
  2. ALLEGRA [Suspect]
     Active Substance: FEXOFENADINE HYDROCHLORIDE
     Indication: Dyspnoea
  3. ZYRTEC [Suspect]
     Active Substance: CETIRIZINE HYDROCHLORIDE
     Indication: Eye swelling
  4. ZYRTEC [Suspect]
     Active Substance: CETIRIZINE HYDROCHLORIDE
     Indication: Dyspnoea
  5. CLARITIN [Concomitant]
     Active Substance: LORATADINE
     Indication: Eye swelling
  6. CLARITIN [Concomitant]
     Active Substance: LORATADINE
     Indication: Dyspnoea

REACTIONS (2)
  - Drug ineffective [Unknown]
  - No adverse event [Unknown]
